FAERS Safety Report 5531735-5 (Version None)
Quarter: 2007Q4

REPORT INFORMATION
  Report Type: 
  Country: None (occurrence: None)
  Receive Date: 20071128
  Receipt Date: 20071114
  Transmission Date: 20080405
  Serious: Yes (Other)
  Sender: FDA-Public Use
  Company Number: 2007S1011701

PATIENT
  Sex: Female

DRUGS (2)
  1. ESTRADIOL [Suspect]
     Indication: DRUG USE FOR UNKNOWN INDICATION
  2. MEDROXYPROGESTERONE [Suspect]
     Indication: DRUG USE FOR UNKNOWN INDICATION

REACTIONS (1)
  - INJURY [None]
